FAERS Safety Report 21898560 (Version 1)
Quarter: 2023Q1

REPORT INFORMATION
  Report Type: Spontaneous
  Country: US (occurrence: None)
  Receive Date: 20230121
  Receipt Date: 20230121
  Transmission Date: 20230418
  Serious: Yes (Disabling)
  Sender: FDA-Public Use
  Company Number: None

PATIENT
  Age: 53 Year
  Sex: Female
  Weight: 72 kg

DRUGS (2)
  1. PREDNISOLONE ACETATE [Suspect]
     Active Substance: PREDNISOLONE ACETATE
     Indication: Eye inflammation
     Dosage: OTHER QUANTITY : 10 DROP(S);?FREQUENCY : 4 TIMES A DAY;?
     Route: 047
     Dates: start: 20221220, end: 20230116
  2. PREDNISOLONE ACETATE [Suspect]
     Active Substance: PREDNISOLONE ACETATE
     Indication: Eye operation

REACTIONS (18)
  - Mania [None]
  - Psychotic disorder [None]
  - Gastrointestinal disorder [None]
  - Derealisation [None]
  - Tremor [None]
  - Muscle spasms [None]
  - Tremor [None]
  - Jaw disorder [None]
  - Emotional disorder [None]
  - Emotional distress [None]
  - Withdrawal syndrome [None]
  - Nausea [None]
  - Abdominal discomfort [None]
  - Gastrointestinal pain [None]
  - Insomnia [None]
  - Asthenia [None]
  - Feeling abnormal [None]
  - Muscle twitching [None]

NARRATIVE: CASE EVENT DATE: 20221221
